FAERS Safety Report 5904288-7 (Version None)
Quarter: 2008Q4

REPORT INFORMATION
  Report Type: 
  Country: None (occurrence: None)
  Receive Date: 20081001
  Receipt Date: 20080626
  Transmission Date: 20090506
  Serious: No
  Sender: FDA-Public Use
  Company Number: US-BRISTOL-MYERS SQUIBB COMPANY-14241970

PATIENT
  Age: 24 Year
  Sex: Male

DRUGS (6)
  1. SPRYCEL [Suspect]
     Indication: CHRONIC MYELOID LEUKAEMIA
     Dates: start: 20070801
  2. KLONOPIN [Concomitant]
  3. NAPROSYN [Concomitant]
  4. PHENERGAN HCL [Concomitant]
  5. ZOFRAN [Concomitant]
  6. HYDROCHLOROTHIAZIDE [Concomitant]

REACTIONS (3)
  - NORMAL NEWBORN [None]
  - PATERNAL DRUGS AFFECTING FOETUS [None]
  - PREGNANCY [None]
